FAERS Safety Report 13864678 (Version 2)
Quarter: 2018Q3

REPORT INFORMATION
  Report Type: Report from Study
  Country: US (occurrence: US)
  Receive Date: 20170814
  Receipt Date: 20180911
  Transmission Date: 20181010
  Serious: Yes (Other)
  Sender: FDA-Public Use
  Company Number: US-ARIAD PHARMACEUTICALS, INC-2017US008689

PATIENT
  Sex: Female

DRUGS (1)
  1. PONATINIB [Suspect]
     Active Substance: PONATINIB
     Indication: ACUTE LYMPHOCYTIC LEUKAEMIA (IN REMISSION)
     Dosage: 30 MG, QD
     Route: 048
     Dates: start: 20151215

REACTIONS (11)
  - Dyspnoea [Unknown]
  - Malaise [Unknown]
  - Depression [Unknown]
  - Pain [Unknown]
  - Liver function test increased [Unknown]
  - Chronic graft versus host disease [Unknown]
  - Arthralgia [Unknown]
  - Cough [Unknown]
  - Neutropenia [Unknown]
  - Dry skin [Unknown]
  - Bone pain [Unknown]
